FAERS Safety Report 21952705 (Version 2)
Quarter: 2023Q2

REPORT INFORMATION
  Report Type: Spontaneous
  Country: NZ (occurrence: NZ)
  Receive Date: 20230203
  Receipt Date: 20230524
  Transmission Date: 20230721
  Serious: Yes (Life-Threatening, Hospitalization, Other)
  Sender: FDA-Public Use
  Company Number: NZ-Accord-298939

PATIENT
  Age: 12 Month
  Sex: Female

DRUGS (2)
  1. TACROLIMUS [Suspect]
     Active Substance: TACROLIMUS
     Indication: Immunosuppression
     Dosage: INITIAL TROUGH TARGET 10-15 MCG/L
  2. PREDNISONE [Suspect]
     Active Substance: PREDNISONE
     Indication: Immunosuppression
     Dosage: LOW-DOSE

REACTIONS (4)
  - Stridor [Unknown]
  - Epstein-Barr virus associated lymphoproliferative disorder [Recovered/Resolved with Sequelae]
  - Epstein-Barr viraemia [Recovering/Resolving]
  - Obstructive airways disorder [Recovered/Resolved]
